FAERS Safety Report 8231804-5 (Version None)
Quarter: 2012Q1

REPORT INFORMATION
  Report Type: 
  Country: None (occurrence: None)
  Receive Date: 20120323
  Receipt Date: 20120312
  Transmission Date: 20120608
  Serious: Yes (Hospitalization)
  Sender: FDA-Public Use
  Company Number: MX-JNJFOC-20120213605

PATIENT
  Sex: Male
  Weight: 80 kg

DRUGS (3)
  1. PREDNISONE TAB [Suspect]
     Indication: PROSTATE CANCER METASTATIC
     Route: 048
     Dates: start: 20120213, end: 20120307
  2. ABIRATERONE ACETATE [Suspect]
     Indication: PROSTATE CANCER METASTATIC
     Route: 048
     Dates: start: 20120301, end: 20120307
  3. ABIRATERONE ACETATE [Suspect]
     Route: 048
     Dates: start: 20120213, end: 20120222

REACTIONS (4)
  - PYREXIA [None]
  - RECTAL HAEMORRHAGE [None]
  - DISSEMINATED INTRAVASCULAR COAGULATION [None]
  - BONE PAIN [None]
